FAERS Safety Report 5191826-8 (Version None)
Quarter: 2006Q4

REPORT INFORMATION
  Report Type: 
  Country: None (occurrence: None)
  Receive Date: 20061227
  Receipt Date: 20061218
  Transmission Date: 20070319
  Serious: Yes (Hospitalization)
  Sender: FDA-Public Use
  Company Number: JP-JNJFOC-20061205597

PATIENT

DRUGS (2)
  1. ITRIZOLE [Suspect]
     Indication: NAIL TINEA
     Dosage: PULSE THERAPY
     Route: 048
  2. ADALAT [Concomitant]
     Indication: HYPERCALCAEMIA
     Route: 048

REACTIONS (2)
  - ANURIA [None]
  - OEDEMA [None]
